FAERS Safety Report 9238847 (Version 2)
Quarter: 2013Q2

REPORT INFORMATION
  Report Type: Report from Study
  Country: IT (occurrence: IT)
  Receive Date: 20130418
  Receipt Date: 20130508
  Transmission Date: 20140414
  Serious: Yes (Hospitalization)
  Sender: FDA-Public Use
  Company Number: IT-ROCHE-1212059

PATIENT
  Age: 26 Year
  Sex: Male
  Weight: 65 kg

DRUGS (34)
  1. RITUXIMAB [Suspect]
     Indication: DIFFUSE LARGE B-CELL LYMPHOMA
     Route: 042
     Dates: start: 20121203, end: 20121203
  2. RHUPH20/RITUXIMAB [Suspect]
     Indication: DIFFUSE LARGE B-CELL LYMPHOMA
     Route: 058
     Dates: start: 20121211, end: 20121211
  3. RHUPH20/RITUXIMAB [Suspect]
     Route: 058
     Dates: start: 20121227, end: 20121227
  4. RHUPH20/RITUXIMAB [Suspect]
     Route: 058
     Dates: start: 20130117, end: 20130117
  5. RHUPH20/RITUXIMAB [Suspect]
     Route: 058
     Dates: start: 20130131, end: 20130131
  6. RHUPH20/RITUXIMAB [Suspect]
     Route: 058
     Dates: start: 20130214, end: 20130214
  7. RHUPH20/RITUXIMAB [Suspect]
     Route: 058
     Dates: start: 20130228, end: 20130228
  8. CYCLOPHOSPHAMIDE [Suspect]
     Indication: DIFFUSE LARGE B-CELL LYMPHOMA
     Route: 065
     Dates: start: 20121203, end: 20121203
  9. CYCLOPHOSPHAMIDE [Suspect]
     Route: 065
     Dates: start: 20121211
  10. CYCLOPHOSPHAMIDE [Suspect]
     Route: 065
     Dates: start: 20121227
  11. CYCLOPHOSPHAMIDE [Suspect]
     Route: 065
     Dates: start: 20130117
  12. CYCLOPHOSPHAMIDE [Suspect]
     Route: 065
     Dates: start: 20130131
  13. CYCLOPHOSPHAMIDE [Suspect]
     Route: 065
     Dates: start: 20130214
  14. DOXORUBICIN [Suspect]
     Indication: DIFFUSE LARGE B-CELL LYMPHOMA
     Route: 065
     Dates: start: 20121203
  15. DOXORUBICIN [Suspect]
     Route: 065
     Dates: start: 20121211
  16. DOXORUBICIN [Suspect]
     Route: 065
     Dates: start: 20121227
  17. DOXORUBICIN [Suspect]
     Route: 065
     Dates: start: 20130117
  18. DOXORUBICIN [Suspect]
     Route: 065
     Dates: start: 20130131
  19. DOXORUBICIN [Suspect]
     Route: 065
     Dates: start: 20130214
  20. VINCRISTINE [Suspect]
     Indication: DIFFUSE LARGE B-CELL LYMPHOMA
     Route: 065
     Dates: start: 20121203
  21. VINCRISTINE [Suspect]
     Route: 065
     Dates: start: 20121211
  22. VINCRISTINE [Suspect]
     Route: 065
     Dates: start: 20121227
  23. VINCRISTINE [Suspect]
     Route: 065
     Dates: start: 20130117
  24. VINCRISTINE [Suspect]
     Route: 065
     Dates: start: 20130131
  25. VINCRISTINE [Suspect]
     Route: 065
     Dates: start: 20130114
  26. PREDNISONE [Suspect]
     Indication: DIFFUSE LARGE B-CELL LYMPHOMA
     Route: 065
     Dates: start: 20121203
  27. PREDNISONE [Suspect]
     Route: 065
     Dates: start: 20121211
  28. PREDNISONE [Suspect]
     Route: 065
     Dates: start: 20121227
  29. PREDNISONE [Suspect]
     Route: 065
     Dates: start: 20130117
  30. PREDNISONE [Suspect]
     Route: 065
     Dates: start: 20130131
  31. PREDNISONE [Suspect]
     Route: 065
     Dates: start: 20130214
  32. PANTORC [Concomitant]
     Indication: GASTRITIS
     Route: 065
     Dates: start: 20130130, end: 20130326
  33. PLASIL [Concomitant]
     Route: 048
     Dates: start: 20130130, end: 20130205
  34. ZOFRAN [Concomitant]
     Indication: NAUSEA
     Route: 048
     Dates: start: 20130130

REACTIONS (1)
  - Troponin T increased [Recovered/Resolved]
